FAERS Safety Report 9810917 (Version 2)
Quarter: 2014Q1

REPORT INFORMATION
  Report Type: Spontaneous
  Country: US (occurrence: US)
  Receive Date: 20140110
  Receipt Date: 20140110
  Transmission Date: 20141002
  Serious: Yes (Other)
  Sender: FDA-Public Use
  Company Number: US-SANOFI-AVENTIS-2013SA000215

PATIENT
  Age: 84 Year
  Sex: Male

DRUGS (4)
  1. PLAVIX [Suspect]
     Indication: CORONARY ARTERY DISEASE
     Route: 048
     Dates: start: 20120128
  2. ASA [Concomitant]
     Indication: CORONARY ARTERY DISEASE
  3. KEPPRA [Concomitant]
     Indication: CONVULSION
  4. PRAVASTATIN [Concomitant]

REACTIONS (1)
  - Gastrointestinal haemorrhage [Recovered/Resolved]
